FAERS Safety Report 5523973-2 (Version None)
Quarter: 2007Q4

REPORT INFORMATION
  Report Type: 
  Country: None (occurrence: None)
  Receive Date: 20071121
  Receipt Date: 20071120
  Transmission Date: 20080405
  Serious: Yes (Death)
  Sender: FDA-Public Use
  Company Number: US-BRISTOL-MYERS SQUIBB COMPANY-13989090

PATIENT
  Age: 45 Year
  Sex: Male

DRUGS (14)
  1. LYSODREN [Suspect]
     Dates: start: 20071010
  2. PREDNISONE TAB [Concomitant]
  3. LOVENOX [Concomitant]
     Dates: start: 20071018
  4. PROTONIX [Concomitant]
     Dates: start: 20071018
  5. FUROSEMIDE [Concomitant]
     Dates: start: 20071015
  6. ZOFRAN [Concomitant]
     Indication: NAUSEA
     Dosage: 1 EVERY 8 HOURS AS NEEDED FOR NAUSEA BEGUN 10/10/2007.
     Dates: start: 20071010
  7. WARFARIN SODIUM [Concomitant]
     Dates: start: 20071009
  8. HYDROCODONE BITARTRATE [Concomitant]
     Dosage: 5MG/500MG 1-2TABLETS EVERY 4HOURS PRN FOR PAIN BEGUN 09-OCT-2007.
     Dates: start: 20071009
  9. BENICAR [Concomitant]
     Dates: start: 20071009
  10. SPIRONOLACTONE [Concomitant]
     Dates: start: 20071009
  11. LABETALOL HCL [Concomitant]
     Dates: start: 20071009
  12. LISINOPRIL [Concomitant]
     Dates: start: 20071009
  13. NIFEDIPINE [Concomitant]
     Dates: start: 20071009
  14. POTASSIUM CHLORIDE [Concomitant]
     Dosage: 11/2 TABLETS.
     Dates: start: 20071009

REACTIONS (1)
  - DEATH [None]
